FAERS Safety Report 21689066 (Version 1)
Quarter: 2022Q4

REPORT INFORMATION
  Report Type: Spontaneous
  Country: FR (occurrence: FR)
  Receive Date: 20221206
  Receipt Date: 20221206
  Transmission Date: 20230113
  Serious: Yes (Death, Other)
  Sender: FDA-Public Use
  Company Number: FR-JNJFOC-20221155689

PATIENT
  Age: 77 Year
  Sex: Female

DRUGS (3)
  1. PREDNISONE [Suspect]
     Active Substance: PREDNISONE
     Indication: Plasma cell myeloma
     Dosage: UNK, (RECEIVED AS FIRST LINE TREATMENT)
     Route: 065
     Dates: end: 20180725
  2. VELCADE [Suspect]
     Active Substance: BORTEZOMIB
     Indication: Plasma cell myeloma
     Dosage: 2.5 MG, QW (2.5 MG/DOSE, 1 DOSE/ WEEK, 4 WEEKS/ CYCLE; RECEIVED AS FIRST LINE TREATMENT)
     Route: 065
     Dates: end: 20180725
  3. MELPHALAN [Suspect]
     Active Substance: MELPHALAN
     Indication: Plasma cell myeloma
     Dosage: 16 MG (0.25 WEEK) (16 MG/ DOSE, 4 DOSES/ WEEK, 1 WEEKS/ CYCLE; RECEIVED AS FIRST LINE TREATMENT)
     Route: 065
     Dates: end: 20180725

REACTIONS (2)
  - Plasma cell myeloma [Fatal]
  - Cytopenia [Unknown]
